FAERS Safety Report 12715828 (Version 6)
Quarter: 2016Q4

REPORT INFORMATION
  Report Type: Spontaneous
  Country: US (occurrence: US)
  Receive Date: 20160906
  Receipt Date: 20161111
  Transmission Date: 20170207
  Serious: Yes (Other)
  Sender: FDA-Public Use
  Company Number: US-PFIZER INC-2016417550

PATIENT
  Age: 59 Year
  Sex: Female

DRUGS (4)
  1. GABAPENTIN. [Suspect]
     Active Substance: GABAPENTIN
     Indication: NEUROPATHY PERIPHERAL
  2. GABAPENTIN. [Suspect]
     Active Substance: GABAPENTIN
     Indication: HYPOAESTHESIA
  3. GABAPENTIN. [Suspect]
     Active Substance: GABAPENTIN
     Indication: PARAESTHESIA
  4. GABAPENTIN. [Suspect]
     Active Substance: GABAPENTIN
     Indication: SENSORY DISTURBANCE
     Dosage: UNK, 3X/DAY (TOOK 300-600MG 3 TIMES DAILY)
     Route: 048

REACTIONS (11)
  - Mood altered [Recovered/Resolved]
  - Balance disorder [Recovered/Resolved]
  - Fatigue [Unknown]
  - Drug intolerance [Unknown]
  - Rash [Recovered/Resolved]
  - Urticaria [Unknown]
  - Weight increased [Recovered/Resolved]
  - Pruritus [Recovered/Resolved]
  - Product use issue [Unknown]
  - Drug hypersensitivity [Unknown]
  - Angioedema [Unknown]
